FAERS Safety Report 4555122-1 (Version None)
Quarter: 2004Q4

REPORT INFORMATION
  Report Type: 
  Country: None (occurrence: None)
  Receive Date: 20041217
  Receipt Date: 20040811
  Transmission Date: 20050328
  Serious: No
  Sender: FDA-Public Use
  Company Number: 2004-BP-05582BP

PATIENT
  Sex: Female

DRUGS (4)
  1. SPIRIVA [Suspect]
     Indication: CHRONIC OBSTRUCTIVE AIRWAYS DISEASE
     Dosage: 18 MCG (18 MCG, OD) IH
     Route: 055
     Dates: start: 20040517
  2. VERAPAMIL [Concomitant]
  3. SEREVENT [Concomitant]
  4. ALBUTEROL [Concomitant]

REACTIONS (2)
  - BRONCHITIS [None]
  - RESPIRATORY TRACT INFECTION [None]
